FAERS Safety Report 6662859-7 (Version None)
Quarter: 2010Q1

REPORT INFORMATION
  Report Type: 
  Country: None (occurrence: None)
  Receive Date: 20100322
  Receipt Date: 20100312
  Transmission Date: 20100710
  Serious: No
  Sender: FDA-Public Use
  Company Number: 2010-00334

PATIENT
  Age: 50 Year
  Sex: Male
  Weight: 84.8226 kg

DRUGS (1)
  1. ZICAM COLD REMEDY NASAL GEL [Suspect]
     Dosage: ONE DOSE, ONE DOSE
     Dates: start: 20100303, end: 20100303

REACTIONS (5)
  - AGEUSIA [None]
  - ANOSMIA [None]
  - BURNING SENSATION [None]
  - NASAL DISCOMFORT [None]
  - SINUS DISORDER [None]
